FAERS Safety Report 17251668 (Version 1)
Quarter: 2020Q1

REPORT INFORMATION
  Report Type: Report from Study
  Country: US (occurrence: US)
  Receive Date: 20200109
  Receipt Date: 20200109
  Transmission Date: 20200409
  Serious: Yes (Other)
  Sender: FDA-Public Use
  Company Number: US-MYLANLABS-2019M1094964

PATIENT
  Sex: Female
  Weight: 94 kg

DRUGS (1)
  1. GLATIRAMER ACETATE INJECTION [Suspect]
     Active Substance: GLATIRAMER ACETATE
     Indication: RELAPSING-REMITTING MULTIPLE SCLEROSIS
     Dosage: 40 MILLIGRAM, 3XW/3XWEEKLY

REACTIONS (6)
  - Heart rate increased [Unknown]
  - Vomiting [Unknown]
  - Urticaria [Unknown]
  - Blood pressure increased [Unknown]
  - Hypoaesthesia [Unknown]
  - Body temperature increased [Unknown]
